FAERS Safety Report 6422910-6 (Version None)
Quarter: 2009Q4

REPORT INFORMATION
  Report Type: 
  Country: None (occurrence: None)
  Receive Date: 20091102
  Receipt Date: 20091023
  Transmission Date: 20100525
  Serious: Yes (Hospitalization)
  Sender: FDA-Public Use
  Company Number: US-ASTRAZENECA-2009SE22189

PATIENT
  Age: 87 Year
  Sex: Female
  Weight: 54.9 kg

DRUGS (10)
  1. ENTOCORT EC [Suspect]
     Indication: COLITIS
     Route: 048
  2. ALTACE [Concomitant]
     Indication: HYPERTENSION
  3. CARDIZEM [Concomitant]
     Indication: HYPERTENSION
  4. ACIPHEX [Concomitant]
     Indication: GASTROOESOPHAGEAL REFLUX DISEASE
  5. FUROSEMIDE [Concomitant]
  6. COREGARD [Concomitant]
  7. ASPIRIN [Concomitant]
  8. LOVAZA [Concomitant]
  9. ASCORBIC ACID [Concomitant]
  10. TYLENOL [Concomitant]
     Indication: ARTHRITIS

REACTIONS (4)
  - HERPES SIMPLEX [None]
  - MOUTH ULCERATION [None]
  - SWELLING FACE [None]
  - TOOTHACHE [None]
